FAERS Safety Report 15747144 (Version 2)
Quarter: 2019Q1

REPORT INFORMATION
  Report Type: Spontaneous
  Country: PT (occurrence: PT)
  Receive Date: 20181220
  Receipt Date: 20190107
  Transmission Date: 20190417
  Serious: Yes (Other)
  Sender: FDA-Public Use
  Company Number: PT-ALIMERA SCIENCES LIMITED-PT-FL-2018-004215

PATIENT

DRUGS (2)
  1. INSULIN [Concomitant]
     Active Substance: INSULIN NOS
     Indication: TYPE 2 DIABETES MELLITUS
  2. FLUOCINOLONE ACETONIDE. [Suspect]
     Active Substance: FLUOCINOLONE ACETONIDE
     Indication: DIABETIC RETINAL OEDEMA
     Dosage: RIGHT EYE
     Route: 031

REACTIONS (5)
  - Vitrectomy [Recovered/Resolved]
  - Posterior lens capsulotomy [Recovered/Resolved]
  - Retinal detachment [Recovered/Resolved]
  - Device dislocation [Recovered/Resolved]
  - Retinal laser coagulation [Recovered/Resolved]
